FAERS Safety Report 18571130 (Version 1)
Quarter: 2020Q4

REPORT INFORMATION
  Report Type: Spontaneous
  Country: US (occurrence: US)
  Receive Date: 20201202
  Receipt Date: 20201202
  Transmission Date: 20210114
  Serious: Yes (Death, Disabling, Other)
  Sender: FDA-Public Use
  Company Number: US-PURDUE-USA-2020-0171074

PATIENT
  Sex: Female

DRUGS (1)
  1. OXYCONTIN [Suspect]
     Active Substance: OXYCODONE HYDROCHLORIDE
     Indication: FATIGUE
     Route: 048

REACTIONS (8)
  - Exposure during pregnancy [Unknown]
  - Drug dependence [Unknown]
  - Drug abuse [Unknown]
  - Cardiac valve disease [Fatal]
  - Theft [Unknown]
  - Staphylococcal infection [Fatal]
  - Multiple organ dysfunction syndrome [Fatal]
  - Product use issue [Unknown]

NARRATIVE: CASE EVENT DATE: 20170810
